FAERS Safety Report 18133279 (Version 3)
Quarter: 2020Q4

REPORT INFORMATION
  Report Type: Report from Study
  Country: FR (occurrence: FR)
  Receive Date: 20200811
  Receipt Date: 20201207
  Transmission Date: 20210113
  Serious: Yes (Death, Other)
  Sender: FDA-Public Use
  Company Number: FR-BRISTOL-MYERS SQUIBB COMPANY-BMS-2020-064101

PATIENT
  Age: 53 Year
  Sex: Male

DRUGS (1)
  1. NIVOLUMAB [Suspect]
     Active Substance: NIVOLUMAB
     Indication: HEAD AND NECK CANCER
     Dosage: 240 MILLIGRAM, Q2WK
     Route: 042
     Dates: start: 20200518, end: 20200602

REACTIONS (6)
  - Acute kidney injury [Fatal]
  - Hypercalcaemia [Fatal]
  - Blood creatinine increased [Not Recovered/Not Resolved]
  - Malignant neoplasm progression [Fatal]
  - Cachexia [Unknown]
  - Dehydration [Unknown]

NARRATIVE: CASE EVENT DATE: 20200602
